FAERS Safety Report 9029370 (Version 2)
Quarter: 2013Q1

REPORT INFORMATION
  Report Type: Spontaneous
  Country: US (occurrence: US)
  Receive Date: 20130125
  Receipt Date: 20130204
  Transmission Date: 20140127
  Serious: Yes (Other)
  Sender: FDA-Public Use
  Company Number: US-SANOFI-AVENTIS-2013SA003666

PATIENT
  Age: 72 Year
  Sex: Female
  Weight: 61.68 kg

DRUGS (2)
  1. LANTUS [Suspect]
     Dosage: DOSE:7 UNIT(S)
     Route: 058
     Dates: start: 20080310
  2. NOVOLOG [Suspect]
     Indication: DIABETES MELLITUS
     Dates: start: 20080310

REACTIONS (1)
  - Cerebrovascular accident [Unknown]
